FAERS Safety Report 8303608-6 (Version None)
Quarter: 2012Q2

REPORT INFORMATION
  Report Type: 
  Country: None (occurrence: None)
  Receive Date: 20120423
  Receipt Date: 20120416
  Transmission Date: 20120825
  Serious: Yes (Hospitalization)
  Sender: FDA-Public Use
  Company Number: US-CELGENEUS-163-21880-12041716

PATIENT
  Sex: Male
  Weight: 122.58 kg

DRUGS (4)
  1. HYDROCHLOROTHIAZIDE [Concomitant]
     Dosage: 25 MILLIGRAM
     Route: 065
  2. CRESTOR [Concomitant]
     Dosage: 80 MILLIGRAM
     Route: 065
  3. REVLIMID [Suspect]
     Indication: MULTIPLE MYELOMA
     Dosage: 10 MILLIGRAM
     Route: 048
     Dates: start: 20110701, end: 20120406
  4. LOSARTAN [Concomitant]
     Dosage: 50 MILLIGRAM
     Route: 065

REACTIONS (2)
  - SKIN LESION [None]
  - FEELING ABNORMAL [None]
